FAERS Safety Report 14746400 (Version 1)
Quarter: 2018Q2

REPORT INFORMATION
  Report Type: Spontaneous
  Country: US (occurrence: US)
  Receive Date: 20180405
  Receipt Date: 20180405
  Transmission Date: 20180711
  Serious: Yes (Hospitalization)
  Sender: FDA-Public Use
  Company Number: None

PATIENT
  Age: 66 Year
  Weight: 98.4 kg

DRUGS (11)
  1. SENNA-S BID PRN [Concomitant]
  2. SIMETHICONE PRN [Concomitant]
  3. OMEPRAZOLE 40MG [Concomitant]
     Active Substance: OMEPRAZOLE
     Dates: start: 20180305
  4. ALLOPURINOL-300 MG DAILY [Concomitant]
     Dates: start: 20180305
  5. OXYCODONE 5MG Q4 PRN [Concomitant]
     Dates: start: 20180305
  6. RUXOLITINIB [Suspect]
     Active Substance: RUXOLITINIB
     Indication: CHRONIC MYELOID LEUKAEMIA
     Route: 048
     Dates: start: 20180129, end: 20180403
  7. 0.2 MG NALOXONE [Concomitant]
     Dates: start: 20180402
  8. SIMVASTATIN 10 MG DAILY [Concomitant]
  9. MORPHINE 204MG Q4PRN FOR BREAKTHROUGH [Concomitant]
     Dates: start: 20180305
  10. MIRALAX PRN [Concomitant]
  11. TYLENOL 325-650 MG Q6HR [Concomitant]
     Dates: start: 20180305

REACTIONS (1)
  - Herpes zoster [None]

NARRATIVE: CASE EVENT DATE: 20180402
